FAERS Safety Report 6070456-X (Version None)
Quarter: 2009Q1

REPORT INFORMATION
  Report Type: 
  Country: None (occurrence: None)
  Receive Date: 20090204
  Receipt Date: 20090122
  Transmission Date: 20090719
  Serious: Yes (Other)
  Sender: FDA-Public Use
  Company Number: 1-17364486

PATIENT
  Age: 31 Year
  Sex: Male

DRUGS (2)
  1. OXCARBAZEPINE [Suspect]
     Indication: SCHIZOPHRENIA
     Dosage: TITRATED UP TO 1200 MG/DAY,
  2. AMISULPRIDE [Suspect]
     Indication: SCHIZOPHRENIA
     Dosage: 400 MG TWICE DAILY,

REACTIONS (7)
  - ALANINE AMINOTRANSFERASE INCREASED [None]
  - ASPARTATE AMINOTRANSFERASE INCREASED [None]
  - BLOOD LACTATE DEHYDROGENASE INCREASED [None]
  - DRUG INTERACTION [None]
  - ELECTROENCEPHALOGRAM ABNORMAL [None]
  - NEUROLEPTIC MALIGNANT SYNDROME [None]
  - SHIFT TO THE LEFT [None]
